FAERS Safety Report 8611227-7 (Version None)
Quarter: 2012Q3

REPORT INFORMATION
  Report Type: 
  Country: None (occurrence: None)
  Receive Date: 20120822
  Receipt Date: 20120808
  Transmission Date: 20120928
  Serious: Yes (Death, Other)
  Sender: FDA-Public Use
  Company Number: JP-PFIZER INC-2010170332

PATIENT
  Age: 85 Year
  Sex: Male
  Weight: 52 kg

DRUGS (5)
  1. IRINOTECAN HYDROCHLORIDE [Suspect]
     Indication: NON-SMALL CELL LUNG CANCER
     Dosage: 89.1 MG, 1X/DAY
     Route: 041
     Dates: start: 20100921, end: 20100921
  2. IRINOTECAN HYDROCHLORIDE [Suspect]
     Dosage: 59.4 MG, 1X/DAY
     Route: 041
     Dates: start: 20100928, end: 20100928
  3. GLYCEOL [Concomitant]
     Dosage: UNK
     Route: 042
     Dates: start: 20101001, end: 20101102
  4. RADICUT [Concomitant]
     Dosage: UNK
     Route: 042
     Dates: start: 20101001, end: 20101012
  5. CISPLATIN [Concomitant]
     Indication: NON-SMALL CELL LUNG CANCER
     Dosage: 116 MG/BODY (80 MG/M2), UNK
     Route: 041
     Dates: start: 20100921, end: 20100921

REACTIONS (2)
  - HAEMOGLOBIN DECREASED [None]
  - CEREBRAL INFARCTION [None]
